FAERS Safety Report 4382721-2 (Version None)
Quarter: 2004Q2

REPORT INFORMATION
  Report Type: 
  Country: None (occurrence: None)
  Receive Date: 20040616
  Receipt Date: 20040601
  Transmission Date: 20050107
  Serious: Yes (Hospitalization, Other)
  Sender: FDA-Public Use
  Company Number: USA031254704

PATIENT
  Sex: Female
  Weight: 68 kg

DRUGS (27)
  1. HUMALOG [Suspect]
     Indication: DIABETES MELLITUS INSULIN-DEPENDENT
     Dosage: 3 U/D AS NEEDED
     Dates: start: 19920101
  2. HUMULIN R [Suspect]
     Indication: DIABETES MELLITUS INSULIN-DEPENDENT
     Dates: end: 19920101
  3. HUMULIN N [Suspect]
     Indication: DIABETES MELLITUS INSULIN-DEPENDENT
     Dates: end: 19920101
  4. LANTUS [Concomitant]
  5. PREMARIN [Concomitant]
  6. ACTOS [Concomitant]
  7. FUROSEMIDE [Concomitant]
  8. ZYRTEC [Concomitant]
  9. AMITRIPTYLINE HCL [Concomitant]
  10. SYNTHROID [Concomitant]
  11. PLAVIX [Concomitant]
  12. DIGOXIN [Concomitant]
  13. METOCLOPRAMIDE [Concomitant]
  14. COUMADIN [Concomitant]
  15. LISINOPRIL(LEVOTHYROXINE SODIUM) [Concomitant]
  16. PLAVIX [Concomitant]
  17. DIGOXIN [Concomitant]
  18. METOCLOPRAMIDE [Concomitant]
  19. COUMADIN [Concomitant]
  20. LISINOPRIL [Concomitant]
  21. BETAPACE [Concomitant]
  22. PRILOSEC [Concomitant]
  23. ZOCOR [Concomitant]
  24. WELCHOL [Concomitant]
  25. CALCIUM [Concomitant]
  26. VITAMIN C [Concomitant]
  27. IRON SUPPLEMENT [Concomitant]

REACTIONS (12)
  - AMNESIA [None]
  - BLINDNESS UNILATERAL [None]
  - BLOOD GLUCOSE DECREASED [None]
  - CEREBROVASCULAR ACCIDENT [None]
  - CORONARY ARTERY SURGERY [None]
  - DRUG INEFFECTIVE [None]
  - HYPERGLYCAEMIA [None]
  - INJECTION SITE HAEMORRHAGE [None]
  - LEG AMPUTATION [None]
  - MEDICAL DEVICE COMPLICATION [None]
  - SCAR [None]
  - TREATMENT NONCOMPLIANCE [None]
